FAERS Safety Report 10180060 (Version 4)
Quarter: 2014Q3

REPORT INFORMATION
  Report Type: Spontaneous
  Country: US (occurrence: US)
  Receive Date: 20140519
  Receipt Date: 20140731
  Transmission Date: 20150326
  Serious: Yes (Hospitalization)
  Sender: FDA-Public Use
  Company Number: US-ACTELION-A-NJ2014-97005

PATIENT
  Age: 37 Year
  Sex: Female

DRUGS (3)
  1. TRACLEER [Suspect]
     Active Substance: BOSENTAN\BOSENTAN MONOHYDRATE
     Indication: PULMONARY ARTERIAL HYPERTENSION
     Dosage: UNK
     Route: 048
  2. SILDENAFIL [Concomitant]
     Active Substance: SILDENAFIL
  3. REMODULIN [Concomitant]
     Active Substance: TREPROSTINIL

REACTIONS (14)
  - Pain [Unknown]
  - Injection site mass [Unknown]
  - Headache [Unknown]
  - Dizziness [Unknown]
  - Abdominal discomfort [Unknown]
  - Catheter site pain [Unknown]
  - Pain in extremity [Unknown]
  - Diarrhoea [Unknown]
  - Deafness unilateral [Unknown]
  - Catheter site infection [Unknown]
  - Systemic lupus erythematosus [Unknown]
  - Arthralgia [Unknown]
  - Myalgia [Unknown]
  - Nausea [Unknown]
